FAERS Safety Report 7746876-1 (Version None)
Quarter: 2011Q3

REPORT INFORMATION
  Report Type: 
  Country: None (occurrence: None)
  Receive Date: 20110913
  Receipt Date: 20110831
  Transmission Date: 20111222
  Serious: No
  Sender: FDA-Public Use
  Company Number: US-B.I. PHARMACEUTICALS,INC./RIDGEFIELD-2011-BP-21291BP

PATIENT
  Age: 64 Year
  Sex: Male

DRUGS (6)
  1. ZOLPIDEM [Concomitant]
     Indication: INSOMNIA
     Dosage: 10 MG
     Route: 048
  2. COLCRYS [Concomitant]
     Indication: GOUT
     Dosage: 0.6 MG
     Route: 048
  3. ZETIA [Concomitant]
     Indication: BLOOD CHOLESTEROL INCREASED
     Dosage: 10 MG
     Route: 048
  4. VERAPAMIL [Concomitant]
     Indication: HYPERTENSION
     Dosage: 360 MG
     Route: 048
  5. PRADAXA [Suspect]
     Indication: ATRIAL FIBRILLATION
     Dosage: 300 MG
     Route: 048
     Dates: start: 20110601
  6. ASPIRIN [Concomitant]
     Indication: ATRIAL FIBRILLATION
     Dosage: 81 MG
     Route: 048

REACTIONS (8)
  - LETHARGY [None]
  - DYSPEPSIA [None]
  - DYSPNOEA [None]
  - DECREASED INTEREST [None]
  - PAIN IN EXTREMITY [None]
  - ARTHRALGIA [None]
  - DEPRESSION [None]
  - MYALGIA [None]
